FAERS Safety Report 23677726 (Version 3)
Quarter: 2024Q2

REPORT INFORMATION
  Report Type: Spontaneous
  Country: US (occurrence: US)
  Receive Date: 20240327
  Receipt Date: 20240405
  Transmission Date: 20240716
  Serious: Yes (Other)
  Sender: FDA-Public Use
  Company Number: US-PFIZER INC-2020260980

PATIENT
  Age: 73 Year
  Sex: Female
  Weight: 61.6 kg

DRUGS (7)
  1. IBRANCE [Suspect]
     Active Substance: PALBOCICLIB
     Indication: Breast cancer female
     Dosage: UNK
     Dates: start: 20200707, end: 2020
  2. IBRANCE [Suspect]
     Active Substance: PALBOCICLIB
     Dosage: 75 MG, DAILY WITH FOOD FOR 21 DAYS
     Route: 048
     Dates: start: 2020
  3. IBRANCE [Suspect]
     Active Substance: PALBOCICLIB
     Dosage: 125 MG
  4. IBRANCE [Suspect]
     Active Substance: PALBOCICLIB
     Dosage: 75 MG
  5. IBRANCE [Suspect]
     Active Substance: PALBOCICLIB
     Dosage: 75 MG, 7 DAYS IN A ROW WITH 7 DAYS OFF IN A 28 DAY CYCLE
     Route: 048
     Dates: start: 20230410
  6. IBRANCE [Suspect]
     Active Substance: PALBOCICLIB
     Dosage: 75MG TABLETS ONE A DAY, ON A WEEK, OFF A WEEK, AND ON A WEEK, AND OFF A WEEK, BY MOUTH
     Route: 048
  7. LETROZOLE [Concomitant]
     Active Substance: LETROZOLE
     Dosage: UNK

REACTIONS (3)
  - Foot operation [Unknown]
  - Intercepted product dispensing error [Unknown]
  - Off label use [Unknown]

NARRATIVE: CASE EVENT DATE: 20200707
